FAERS Safety Report 15214164 (Version 10)
Quarter: 2018Q4

REPORT INFORMATION
  Report Type: Report from Study
  Country: CA (occurrence: CA)
  Receive Date: 20180730
  Receipt Date: 20181019
  Transmission Date: 20190204
  Serious: Yes (Death, Hospitalization, Other)
  Sender: FDA-Public Use
  Company Number: PHHY2017CA001409

PATIENT
  Age: 74 Year
  Sex: Male

DRUGS (3)
  1. SANDOSTATIN LAR DEPOT [Suspect]
     Active Substance: OCTREOTIDE ACETATE
     Indication: PANCREATIC NEUROENDOCRINE TUMOUR
     Dosage: 30 MG, QMO (EVERY 4 WEEKS)
     Route: 030
     Dates: start: 20160301
  2. BISOPROLOL [Suspect]
     Active Substance: BISOPROLOL
     Indication: PRODUCT USED FOR UNKNOWN INDICATION
     Dosage: 5 MG, QD
     Route: 065
  3. ELIQUIS [Concomitant]
     Active Substance: APIXABAN
     Indication: PRODUCT USED FOR UNKNOWN INDICATION
     Dosage: 2.5 MG, QD
     Route: 065

REACTIONS (22)
  - Injection site pain [Recovered/Resolved]
  - Pericardial effusion [Unknown]
  - Blood glucose increased [Unknown]
  - Dyspnoea [Unknown]
  - Blood pressure systolic increased [Unknown]
  - Swelling [Unknown]
  - Asthenia [Unknown]
  - Death [Fatal]
  - Blood iron decreased [Unknown]
  - Arthralgia [Unknown]
  - Decreased appetite [Unknown]
  - Haemoglobin decreased [Unknown]
  - Epistaxis [Unknown]
  - Upper limb fracture [Unknown]
  - Weight decreased [Unknown]
  - Confusional state [Unknown]
  - Pancreatic neuroendocrine tumour [Unknown]
  - Herpes zoster [Unknown]
  - Malignant neoplasm progression [Unknown]
  - Fall [Unknown]
  - Musculoskeletal pain [Unknown]
  - Fatigue [Unknown]

NARRATIVE: CASE EVENT DATE: 201612
